FAERS Safety Report 6278397-X (Version None)
Quarter: 2009Q3

REPORT INFORMATION
  Report Type: 
  Country: None (occurrence: None)
  Receive Date: 20090720
  Receipt Date: 20090720
  Transmission Date: 20100115
  Serious: Yes (Other)
  Sender: FDA-Public Use
  Company Number: None

PATIENT
  Age: 68 Year
  Sex: Male
  Weight: 90.7194 kg

DRUGS (1)
  1. LEVAQUIN [Suspect]
     Indication: PNEUMONIA
     Dosage: 5 TABLETS 1/24 HOURS PO
     Route: 048
     Dates: start: 20090630, end: 20090704

REACTIONS (4)
  - HYPOAESTHESIA [None]
  - MUSCULOSKELETAL PAIN [None]
  - NERVE INJURY [None]
  - SLEEP DISORDER [None]
